FAERS Safety Report 9464137 (Version 1)
Quarter: 2013Q3

REPORT INFORMATION
  Report Type: Spontaneous
  Country: US (occurrence: US)
  Receive Date: 20130819
  Receipt Date: 20130819
  Transmission Date: 20140515
  Serious: Yes (Other)
  Sender: FDA-Public Use
  Company Number: US-SHIONOGI, INC-2013000233

PATIENT
  Age: 19 Year
  Sex: Male

DRUGS (1)
  1. AMOXICILLIN [Suspect]
     Indication: OTITIS MEDIA
     Dosage: UNK
     Route: 065

REACTIONS (7)
  - Catatonia [Recovering/Resolving]
  - Hallucination, visual [Recovering/Resolving]
  - Hypometabolism [Recovering/Resolving]
  - Mental status changes [Recovering/Resolving]
  - Speech disorder [Recovering/Resolving]
  - Insomnia [Recovering/Resolving]
  - Decreased appetite [Recovering/Resolving]
